FAERS Safety Report 5957571-3 (Version None)
Quarter: 2008Q4

REPORT INFORMATION
  Report Type: 
  Country: None (occurrence: None)
  Receive Date: 20081117
  Receipt Date: 20081117
  Transmission Date: 20090506
  Serious: No
  Sender: FDA-Public Use
  Company Number: None

PATIENT
  Age: 79 Year
  Sex: Female
  Weight: 54.4316 kg

DRUGS (1)
  1. VFEND [Suspect]
     Indication: LOWER RESPIRATORY TRACT INFECTION FUNGAL
     Dosage: 2X TWICE A DAY
     Dates: start: 20081018

REACTIONS (2)
  - BLINDNESS TRANSIENT [None]
  - HALLUCINATION [None]
